FAERS Safety Report 6957063-9 (Version None)
Quarter: 2010Q3

REPORT INFORMATION
  Report Type: 
  Country: None (occurrence: None)
  Receive Date: 20100831
  Receipt Date: 20100824
  Transmission Date: 20110219
  Serious: Yes (Hospitalization, Other)
  Sender: FDA-Public Use
  Company Number: US-BIOGENIDEC-2009BI010471

PATIENT
  Sex: Female

DRUGS (2)
  1. TYSABRI [Suspect]
     Indication: MULTIPLE SCLEROSIS
     Route: 042
     Dates: start: 20070712
  2. TYSABRI [Suspect]
     Route: 042

REACTIONS (13)
  - BLADDER DISORDER [None]
  - BONE DISORDER [None]
  - FALL [None]
  - GENERAL SYMPTOM [None]
  - IMPAIRED HEALING [None]
  - JOINT INJURY [None]
  - MOBILITY DECREASED [None]
  - MULTIPLE SCLEROSIS [None]
  - MUSCLE SPASMS [None]
  - OPEN WOUND [None]
  - PERONEAL NERVE PALSY [None]
  - TREMOR [None]
  - WOUND INFECTION [None]
